FAERS Safety Report 9551829 (Version 1)
Quarter: 2013Q3

REPORT INFORMATION
  Report Type: Spontaneous
  Country: US (occurrence: US)
  Receive Date: 20130925
  Receipt Date: 20130925
  Transmission Date: 20140515
  Serious: No
  Sender: FDA-Public Use
  Company Number: US-MYLANLABS-2013S1013178

PATIENT
  Age: 83 Year
  Sex: Male
  Weight: 81.65 kg

DRUGS (3)
  1. ATORVASTATIN CALCIUM TABLETS [Suspect]
     Indication: BLOOD CHOLESTEROL INCREASED
     Dates: start: 201303, end: 20130615
  2. LOSARTAN [Concomitant]
     Indication: BLOOD PRESSURE INCREASED
     Route: 048
  3. VITAMIN D3 [Concomitant]
     Route: 048

REACTIONS (1)
  - Pain in extremity [Not Recovered/Not Resolved]
